FAERS Safety Report 5751751-8 (Version None)
Quarter: 2008Q2

REPORT INFORMATION
  Report Type: 
  Country: None (occurrence: None)
  Receive Date: 20080529
  Receipt Date: 20080520
  Transmission Date: 20081010
  Serious: Yes (Other)
  Sender: FDA-Public Use
  Company Number: US-JNJFOC-20080504039

PATIENT
  Sex: Male
  Weight: 69.85 kg

DRUGS (2)
  1. DOXIL [Suspect]
     Indication: SARCOMA
     Route: 042
  2. HYDROCODONE BITARTRATE [Concomitant]
     Indication: COUGH
     Route: 065

REACTIONS (4)
  - ARRHYTHMIA [None]
  - ARTHRALGIA [None]
  - COUGH [None]
  - JOINT SWELLING [None]
